FAERS Safety Report 9729777 (Version 1)
Quarter: 2013Q4

REPORT INFORMATION
  Report Type: Spontaneous
  Country: US (occurrence: US)
  Receive Date: 20131204
  Receipt Date: 20131204
  Transmission Date: 20140711
  Serious: No
  Sender: FDA-Public Use
  Company Number: US-GILEAD-2009-0022427

PATIENT
  Sex: Male
  Weight: 89.81 kg

DRUGS (13)
  1. LETAIRIS [Suspect]
     Indication: PULMONARY ARTERIAL HYPERTENSION
     Route: 048
     Dates: start: 20090313
  2. LASIX [Concomitant]
  3. ALDACTONE [Concomitant]
  4. ENULOSE [Concomitant]
  5. LEVOTHYROXINE [Concomitant]
  6. KLOR-CON [Concomitant]
  7. ESSIAC [Concomitant]
  8. KANGEN [Concomitant]
  9. GASTROFIBER [Concomitant]
  10. SP GREEN FOOD [Concomitant]
  11. MARSHMALLOW ROOT [Concomitant]
  12. FLAX OIL [Concomitant]
  13. SP DIETARY [Concomitant]

REACTIONS (5)
  - Liver function test abnormal [Unknown]
  - Disturbance in attention [Unknown]
  - Pain in extremity [Unknown]
  - Local swelling [Unknown]
  - Unevaluable event [Unknown]
